FAERS Safety Report 7246166-X (Version None)
Quarter: 2011Q1

REPORT INFORMATION
  Report Type: 
  Country: None (occurrence: None)
  Receive Date: 20110126
  Receipt Date: 20110119
  Transmission Date: 20110831
  Serious: Yes (Hospitalization)
  Sender: FDA-Public Use
  Company Number: A0908803A

PATIENT
  Sex: Female

DRUGS (1)
  1. PAXIL [Suspect]
     Indication: DEPRESSION
     Route: 048
     Dates: start: 19960601, end: 20000801

REACTIONS (5)
  - DEPRESSION [None]
  - AGORAPHOBIA [None]
  - ANXIETY [None]
  - SUICIDAL IDEATION [None]
  - SUICIDE ATTEMPT [None]
